FAERS Safety Report 11236536 (Version 1)
Quarter: 2015Q3

REPORT INFORMATION
  Report Type: Report from Study
  Country: MX (occurrence: MX)
  Receive Date: 20150702
  Receipt Date: 20150702
  Transmission Date: 20151125
  Serious: Yes (Hospitalization, Other)
  Sender: FDA-Public Use
  Company Number: PHHY2015MX069553

PATIENT
  Sex: Female
  Weight: 82 kg

DRUGS (4)
  1. METFORMIN [Concomitant]
     Active Substance: METFORMIN HYDROCHLORIDE
     Indication: HYPERTENSION
     Dosage: 800 MG, Q12H
     Route: 048
  2. VERAPAMILO [Concomitant]
     Indication: PRODUCT USED FOR UNKNOWN INDICATION
     Dosage: UNK
     Route: 065
  3. ULTIBRO BREEZHALER [Suspect]
     Active Substance: GLYCOPYRRONIUM\INDACATEROL
     Indication: RESPIRATORY DISORDER
     Dosage: 1 OT, QD
     Route: 055
     Dates: end: 201505
  4. LEVOTHYROXINE. [Concomitant]
     Active Substance: LEVOTHYROXINE
     Indication: OBESITY
     Dosage: 1 OT, QD (EVERY 24 HOURS)
     Route: 048

REACTIONS (4)
  - Off label use [Unknown]
  - Metastases to liver [Unknown]
  - Lung neoplasm malignant [Unknown]
  - Metastasis [Unknown]
